FAERS Safety Report 9643660 (Version 1)
Quarter: 2013Q4

REPORT INFORMATION
  Report Type: Spontaneous
  Country: ES (occurrence: ES)
  Receive Date: 20131024
  Receipt Date: 20131024
  Transmission Date: 20140711
  Serious: Yes (Hospitalization, Other)
  Sender: FDA-Public Use
  Company Number: US-ASTRAZENECA-2013SE77381

PATIENT
  Age: 78 Year
  Sex: Female

DRUGS (7)
  1. PARAPRES PLUS [Suspect]
     Indication: HYPERTENSION
     Dosage: 32 MG/ 12.5 MG, 1DF EVERY DAY
     Route: 048
     Dates: start: 20130206, end: 20130219
  2. PLANTABEN [Suspect]
     Indication: CONSTIPATION
     Dosage: 1 OR 2 SACHETS
     Route: 048
     Dates: start: 20120629, end: 20130219
  3. CITRAFLEET POLVO PARA [Suspect]
     Indication: COLONOSCOPY
     Dosage: 1 OR 2 SACHETS, FREQUENCY NOT PROVIDED
     Route: 048
     Dates: start: 20130218, end: 20130219
  4. TOVIAZ [Suspect]
     Indication: INCONTINENCE
     Route: 048
     Dates: start: 20071203, end: 20130219
  5. EUTIROX [Concomitant]
     Indication: HYPOTHYROIDISM
     Route: 048
  6. NATECAL D [Concomitant]
     Indication: HYPOVITAMINOSIS
     Route: 048
     Dates: start: 20091201
  7. ACTONEL SEMANAL [Concomitant]
     Indication: OSTEOPOROSIS
     Route: 048
     Dates: start: 20100920

REACTIONS (2)
  - Status epilepticus [Recovered/Resolved]
  - Hyponatraemia [Recovered/Resolved]
